FAERS Safety Report 4312890-1 (Version None)
Quarter: 2004Q1

REPORT INFORMATION
  Report Type: 
  Country: None (occurrence: None)
  Receive Date: 20040304
  Receipt Date: 20040224
  Transmission Date: 20041129
  Serious: Yes (Hospitalization, Other)
  Sender: FDA-Public Use
  Company Number: 2004-02-1714

PATIENT
  Age: 43 Year
  Sex: Male
  Weight: 59 kg

DRUGS (7)
  1. GENTAMICIN SULFATE [Suspect]
     Indication: DRUG RESISTANCE
     Dosage: 160 MG QD INTRAVENOUS
     Route: 042
     Dates: start: 20040122, end: 20040128
  2. GENTAMICIN SULFATE [Suspect]
     Indication: STAPHYLOCOCCAL INFECTION
     Dosage: 160 MG QD INTRAVENOUS
     Route: 042
     Dates: start: 20040122, end: 20040128
  3. VANCOCIN INJECTABLE POWDER [Suspect]
     Indication: STAPHYLOCOCCAL INFECTION
     Dosage: 2 G QD INTRAVENOUS
     Route: 042
     Dates: start: 20040122, end: 20040128
  4. PERISTALTINE (CASCARA) TABLETS [Concomitant]
  5. OMEPRAZOLE [Concomitant]
  6. MOSCONTIN TABLETS [Concomitant]
  7. PRIMPERAN TABLETS [Concomitant]

REACTIONS (7)
  - BLOOD CULTURE POSITIVE [None]
  - BLOOD SODIUM DECREASED [None]
  - DRUG INTERACTION [None]
  - JAUNDICE CHOLESTATIC [None]
  - OVERDOSE [None]
  - RENAL FAILURE ACUTE [None]
  - SYSTEMIC INFLAMMATORY RESPONSE SYNDROME [None]
